FAERS Safety Report 6144069-5 (Version None)
Quarter: 2009Q2

REPORT INFORMATION
  Report Type: 
  Country: None (occurrence: None)
  Receive Date: 20090401
  Receipt Date: 20090325
  Transmission Date: 20091009
  Serious: Yes (Death, Hospitalization)
  Sender: FDA-Public Use
  Company Number: THQ2009A00513

PATIENT
  Age: 65 Year
  Sex: Female

DRUGS (3)
  1. PIOGLITAZONE HCL [Suspect]
     Indication: TYPE 2 DIABETES MELLITUS
     Dosage: 30 MG
     Dates: start: 20081218, end: 20081227
  2. NEXIUM-MUPS (ESOMEPRAZOLE MAGNESIUM) [Concomitant]
  3. LASIX [Concomitant]

REACTIONS (5)
  - BLOOD GLUCOSE INCREASED [None]
  - CARDIAC FAILURE [None]
  - FEELING ABNORMAL [None]
  - OEDEMA PERIPHERAL [None]
  - PLEURAL EFFUSION [None]
